FAERS Safety Report 6657631-8 (Version None)
Quarter: 2010Q1

REPORT INFORMATION
  Report Type: 
  Country: None (occurrence: None)
  Receive Date: 20100330
  Receipt Date: 20100318
  Transmission Date: 20100710
  Serious: Yes (Hospitalization)
  Sender: FDA-Public Use
  Company Number: FR-PFIZER INC-2010034855

PATIENT
  Age: 64 Year
  Sex: Male

DRUGS (9)
  1. SUTENT [Suspect]
     Dosage: 50 MG, 1X/DAY
     Route: 048
     Dates: start: 20091120, end: 20091101
  2. SUTENT [Interacting]
     Dosage: UNK
     Dates: start: 20100124, end: 20100127
  3. LIORESAL ^NOVARTIS^ [Interacting]
     Dosage: 1 DF, 3X/DAY
     Route: 048
     Dates: start: 20100113, end: 20100119
  4. DILTIAZEM [Interacting]
     Dosage: 200 MG, 1X/DAY
     Route: 048
     Dates: end: 20100119
  5. ASPIRIN [Concomitant]
     Dosage: 325 MG, 1X/DAY
  6. ZOCOR [Concomitant]
     Dosage: 40 MG, 1X/DAY
  7. INIPOMP [Concomitant]
     Dosage: 40 MG, 1X/DAY
  8. ALDACTAZINE [Concomitant]
     Dosage: 0.5 DF, 1X/DAY
  9. PARACETAMOL [Concomitant]

REACTIONS (2)
  - DRUG INTERACTION [None]
  - VENTRICULAR TACHYCARDIA [None]
